FAERS Safety Report 21182933 (Version 1)
Quarter: 2022Q3

REPORT INFORMATION
  Report Type: Report from Study
  Country: MX (occurrence: MX)
  Receive Date: 20220808
  Receipt Date: 20220808
  Transmission Date: 20221027
  Serious: Yes (Other)
  Sender: FDA-Public Use
  Company Number: MX-NOVARTISPH-NVSC2022MX167419

PATIENT
  Sex: Female
  Weight: 85 kg

DRUGS (4)
  1. METFORMIN HYDROCHLORIDE\VILDAGLIPTIN [Suspect]
     Active Substance: METFORMIN HYDROCHLORIDE\VILDAGLIPTIN
     Indication: Diabetes mellitus
     Dosage: 1 DOSAGE FORM, QD, (STARTED 10 MONTHS AGO)
     Route: 048
     Dates: end: 202207
  2. METFORMIN HYDROCHLORIDE\VILDAGLIPTIN [Suspect]
     Active Substance: METFORMIN HYDROCHLORIDE\VILDAGLIPTIN
     Dosage: 0.5 DOSAGE FORM, QD (STARTED 10 DAYS AGO)
     Route: 048
     Dates: start: 202207
  3. LOSARTAN [Concomitant]
     Active Substance: LOSARTAN
     Indication: Hypertension
     Dosage: 1 DOSAGE FORM, QD, (STARTED 7 YEARS AGO)
     Route: 048
  4. METFORMIN [Concomitant]
     Active Substance: METFORMIN HYDROCHLORIDE
     Indication: Diabetes mellitus
     Dosage: UNK
     Route: 065

REACTIONS (8)
  - Diabetic metabolic decompensation [Not Recovered/Not Resolved]
  - Headache [Not Recovered/Not Resolved]
  - Anxiety [Not Recovered/Not Resolved]
  - Dizziness [Not Recovered/Not Resolved]
  - Hip fracture [Not Recovered/Not Resolved]
  - Blood glucose increased [Not Recovered/Not Resolved]
  - Fall [Recovered/Resolved with Sequelae]
  - Wrong technique in product usage process [Not Recovered/Not Resolved]
